FAERS Safety Report 9768595 (Version 2)
Quarter: 2014Q1

REPORT INFORMATION
  Report Type: Spontaneous
  Country: CA (occurrence: CA)
  Receive Date: 20131218
  Receipt Date: 20140117
  Transmission Date: 20141002
  Serious: Yes (Other)
  Sender: FDA-Public Use
  Company Number: CA-ROCHE-1321442

PATIENT
  Sex: Male

DRUGS (12)
  1. XOLAIR [Suspect]
     Indication: ASTHMA
     Route: 058
  2. XOLAIR [Suspect]
     Route: 058
  3. XOLAIR [Suspect]
     Route: 058
  4. ADVAIR [Concomitant]
  5. ALVESCO [Concomitant]
  6. SPIRIVA [Concomitant]
  7. PREDNISONE [Concomitant]
  8. SYNTHROID [Concomitant]
  9. PREVACID [Concomitant]
  10. WELLBUTRIN [Concomitant]
  11. SERC (CANADA) [Concomitant]
  12. REACTINE (CANADA) [Concomitant]

REACTIONS (1)
  - Serum sickness [Recovered/Resolved]
